FAERS Safety Report 9321328 (Version 1)
Quarter: 2013Q2

REPORT INFORMATION
  Report Type: Spontaneous
  Country: BR (occurrence: None)
  Receive Date: 20130528
  Receipt Date: 20130528
  Transmission Date: 20140414
  Serious: Yes (Other)
  Sender: FDA-Public Use
  Company Number: 2013P1006095

PATIENT
  Sex: 0

DRUGS (2)
  1. PROMETHAZINE [Suspect]
     Route: 030
  2. HALOPERIDOL [Suspect]
     Route: 030

REACTIONS (2)
  - Extrapyramidal disorder [None]
  - Potentiating drug interaction [None]
